FAERS Safety Report 4391870-4 (Version None)
Quarter: 2004Q3

REPORT INFORMATION
  Report Type: 
  Country: None (occurrence: None)
  Receive Date: 20040702
  Receipt Date: 20040415
  Transmission Date: 20050211
  Serious: Yes (Hospitalization)
  Sender: FDA-Public Use
  Company Number: 2004UW07696

PATIENT
  Age: 71 Year
  Sex: Male

DRUGS (2)
  1. CRESTOR [Suspect]
     Indication: HYPERLIPIDAEMIA
     Dosage: 10 MG PO
     Route: 048
  2. ACE INHIBITOR (UNSPECIFIED) [Concomitant]

REACTIONS (3)
  - DRUG HYPERSENSITIVITY [None]
  - HEPATITIS [None]
  - RENAL FAILURE ACUTE [None]
